FAERS Safety Report 9267094 (Version 3)
Quarter: 2017Q2

REPORT INFORMATION
  Report Type: Report from Study
  Country: GB (occurrence: GB)
  Receive Date: 20130502
  Receipt Date: 20170525
  Transmission Date: 20170830
  Serious: Yes (Hospitalization)
  Sender: FDA-Public Use
  Company Number: GB-JNJFOC-20130414690

PATIENT
  Age: 51 Year
  Sex: Male
  Weight: 56 kg

DRUGS (21)
  1. DIAZEPAM. [Concomitant]
     Active Substance: DIAZEPAM
     Dates: start: 20080204
  2. VENTOLIN [Concomitant]
     Active Substance: ALBUTEROL SULFATE
     Dates: start: 20100915
  3. USTEKINUMAB [Suspect]
     Active Substance: USTEKINUMAB
     Indication: PSORIASIS
     Route: 058
     Dates: start: 20110109
  4. DIHYDROCODEINE [Concomitant]
     Active Substance: DIHYDROCODEINE
     Dates: start: 20080204
  5. BETNOVATE [Concomitant]
     Active Substance: BETAMETHASONE
     Dates: start: 20080730
  6. CICLOSPORIN [Concomitant]
     Active Substance: CYCLOSPORINE
     Dates: start: 20100915
  7. TEMAZEPAM. [Concomitant]
     Active Substance: TEMAZEPAM
     Dates: start: 20081215
  8. NABUMETONE. [Concomitant]
     Active Substance: NABUMETONE
     Dates: start: 20100515
  9. THIAMINE. [Concomitant]
     Active Substance: THIAMINE
     Dates: start: 20080204
  10. PREGABALIN. [Concomitant]
     Active Substance: PREGABALIN
     Route: 065
  11. METOCLOPRAMIDE. [Concomitant]
     Active Substance: METOCLOPRAMIDE
     Route: 065
  12. AMITRIPTYLINE [Concomitant]
     Active Substance: AMITRIPTYLINE
     Dates: start: 20100512
  13. OMEPRAZOLE. [Concomitant]
     Active Substance: OMEPRAZOLE
     Dates: start: 20100512
  14. ATARAX [Concomitant]
     Active Substance: HYDROXYZINE HYDROCHLORIDE
     Dates: start: 20080204
  15. ZOPICLONE [Concomitant]
     Active Substance: ZOPICLONE
     Dates: start: 20080204
  16. VITAMIN B12 [Concomitant]
     Active Substance: CYANOCOBALAMIN
     Dates: start: 20100512
  17. BISOPROLOL [Concomitant]
     Active Substance: BISOPROLOL
     Dates: start: 20100915
  18. SALBUTAMOL [Concomitant]
     Active Substance: ALBUTEROL
     Route: 055
  19. ALIMEMAZINE [Concomitant]
     Active Substance: TRIMEPRAZINE
     Dates: start: 20100515
  20. PARACETAMOL [Concomitant]
     Active Substance: ACETAMINOPHEN
     Dates: start: 20080204
  21. DULOXETINE. [Concomitant]
     Active Substance: DULOXETINE
     Route: 065

REACTIONS (2)
  - Psoriatic arthropathy [Unknown]
  - Gastroenteritis viral [Recovered/Resolved]

NARRATIVE: CASE EVENT DATE: 20121114
